FAERS Safety Report 18328425 (Version 1)
Quarter: 2020Q3

REPORT INFORMATION
  Report Type: Spontaneous
  Country: US (occurrence: US)
  Receive Date: 20200929
  Receipt Date: 20200929
  Transmission Date: 20201103
  Serious: Yes (Death)
  Sender: FDA-Public Use
  Company Number: None

PATIENT
  Age: 72 Year
  Sex: Male

DRUGS (1)
  1. CYCLOPHOSPHAMIDE CAP 50MG [Suspect]
     Active Substance: CYCLOPHOSPHAMIDE
     Indication: PLASMA CELL MYELOMA
     Dosage: ?          OTHER FREQUENCY:OTHER;?
     Route: 048
     Dates: start: 201811, end: 202001

REACTIONS (1)
  - Death [None]
